FAERS Safety Report 5118682-8 (Version None)
Quarter: 2006Q4

REPORT INFORMATION
  Report Type: 
  Country: None (occurrence: None)
  Receive Date: 20061002
  Receipt Date: 20020910
  Transmission Date: 20070319
  Serious: Yes (Life-Threatening, Disabling)
  Sender: FDA-Public Use
  Company Number: NO-ROCHE-321916

PATIENT
  Age: 45 Year
  Sex: Male

DRUGS (3)
  1. ACCUTANE [Suspect]
     Indication: ACNE CONGLOBATA
     Route: 048
     Dates: start: 19840706, end: 19841002
  2. ACCUTANE [Suspect]
     Dosage: DISCONTINUED EITHER IN DECEMBER 1984 OR JANUARY 1985.
     Route: 048
     Dates: start: 19841002
  3. ACCUTANE [Suspect]
     Dosage: STARTED IN DECEMBER 1984/JANUARY 1985. DISCONTINUED IN MARCH/APRIL 1985.
     Route: 048
     Dates: end: 19850615

REACTIONS (9)
  - AMNESIA [None]
  - ANXIETY [None]
  - AORTIC ANEURYSM [None]
  - BACK PAIN [None]
  - CEREBROVASCULAR DISORDER [None]
  - DEPRESSION [None]
  - HEADACHE [None]
  - SLEEP DISORDER [None]
  - VISUAL DISTURBANCE [None]
